FAERS Safety Report 4668258-1 (Version None)
Quarter: 2005Q2

REPORT INFORMATION
  Report Type: 
  Country: None (occurrence: None)
  Receive Date: 20050523
  Receipt Date: 20040422
  Transmission Date: 20051028
  Serious: Yes (Other)
  Sender: FDA-Public Use
  Company Number: PHBS2004BE05788

PATIENT
  Age: 70 Year
  Sex: Female

DRUGS (4)
  1. AREDIA [Suspect]
     Dosage: 60 MG 4-WEEKLY
     Route: 065
     Dates: start: 20030101
  2. NEORECORMON ^BOEHRINGER MANNHEIM^ [Concomitant]
     Route: 065
  3. FEMARA [Concomitant]
     Dates: end: 20030415
  4. ZOMETA [Suspect]
     Indication: BREAST CANCER
     Route: 065
     Dates: start: 20030207, end: 20030729

REACTIONS (6)
  - ABSCESS JAW [None]
  - ACTINOMYCOSIS [None]
  - JAW DISORDER [None]
  - OSTEOMYELITIS [None]
  - OSTEONECROSIS [None]
  - PURULENT DISCHARGE [None]
